FAERS Safety Report 17839128 (Version 3)
Quarter: 2020Q2

REPORT INFORMATION
  Report Type: Spontaneous
  Country: US (occurrence: US)
  Receive Date: 20200529
  Receipt Date: 20200603
  Transmission Date: 20200714
  Serious: Yes (Other)
  Sender: FDA-Public Use
  Company Number: US-AMGEN-USASP2020085182

PATIENT
  Age: 57 Year
  Sex: Female

DRUGS (3)
  1. REPATHA [Suspect]
     Active Substance: EVOLOCUMAB
     Indication: BLOOD CHOLESTEROL ABNORMAL
     Dosage: 140 MILLIGRAM, Q2WK
     Route: 065
     Dates: start: 202004, end: 2020
  2. REPATHA [Suspect]
     Active Substance: EVOLOCUMAB
     Indication: BLOOD CHOLESTEROL INCREASED
  3. REPATHA [Suspect]
     Active Substance: EVOLOCUMAB
     Indication: HYPERCHOLESTEROLAEMIA

REACTIONS (10)
  - Night sweats [Unknown]
  - Headache [Unknown]
  - Vision blurred [Unknown]
  - Cerebrovascular accident [Unknown]
  - Heart rate irregular [Unknown]
  - Blood glucose increased [Unknown]
  - Thirst [Unknown]
  - Vitreous floaters [Unknown]
  - Appetite disorder [Unknown]
  - Photopsia [Unknown]

NARRATIVE: CASE EVENT DATE: 2020
